FAERS Safety Report 18717170 (Version 1)
Quarter: 2021Q1

REPORT INFORMATION
  Report Type: Spontaneous
  Country: US (occurrence: US)
  Receive Date: 20210108
  Receipt Date: 20210108
  Transmission Date: 20210419
  Serious: Yes (Life-Threatening, Hospitalization)
  Sender: FDA-Public Use
  Company Number: None

PATIENT
  Age: 53 Year
  Sex: Female
  Weight: 79.65 kg

DRUGS (1)
  1. BAMLANIVIMAB. [Suspect]
     Active Substance: BAMLANIVIMAB
     Indication: COVID-19
     Dates: start: 20210107, end: 20210107

REACTIONS (5)
  - Product selection error [None]
  - Anaphylactic reaction [None]
  - Hypotension [None]
  - Product prescribing error [None]
  - Hypoxia [None]

NARRATIVE: CASE EVENT DATE: 20210107
